FAERS Safety Report 23344503 (Version 1)
Quarter: 2023Q4

REPORT INFORMATION
  Report Type: Spontaneous
  Country: FR (occurrence: FR)
  Receive Date: 20231228
  Receipt Date: 20231228
  Transmission Date: 20240110
  Serious: Yes (Other)
  Sender: FDA-Public Use
  Company Number: FR-CELLTRION INC.-2023FR024724

PATIENT

DRUGS (2)
  1. ADALIMUMAB [Suspect]
     Active Substance: ADALIMUMAB\ISOPROPYL ALCOHOL
     Indication: Crohn^s disease
     Dosage: UNK
     Route: 065
  2. AZATHIOPRINE [Concomitant]
     Active Substance: AZATHIOPRINE
     Indication: Crohn^s disease
     Dosage: UNK
     Route: 065

REACTIONS (8)
  - Diffuse large B-cell lymphoma [Unknown]
  - General physical health deterioration [Unknown]
  - Iron deficiency anaemia [Unknown]
  - Decreased appetite [Unknown]
  - Epstein-Barr virus infection [Unknown]
  - Asthenia [Unknown]
  - Weight decreased [Unknown]
  - Abdominal pain [Unknown]
